FAERS Safety Report 4952525-8 (Version None)
Quarter: 2006Q1

REPORT INFORMATION
  Report Type: 
  Country: None (occurrence: None)
  Receive Date: 20060323
  Receipt Date: 20060208
  Transmission Date: 20060701
  Serious: Yes (Death, Hospitalization)
  Sender: FDA-Public Use
  Company Number: US-MERCK-0602USA02275

PATIENT
  Age: 84 Year
  Sex: Male
  Weight: 53 kg

DRUGS (8)
  1. VIOXX [Suspect]
     Indication: ARTHRITIS
     Route: 048
     Dates: start: 20020101, end: 20040202
  2. VIOXX [Suspect]
     Indication: OSTEOARTHRITIS
     Route: 048
     Dates: start: 20020101, end: 20040202
  3. ARICEPT [Concomitant]
     Route: 065
  4. BACLOFEN [Concomitant]
     Route: 065
  5. NEURONTIN [Concomitant]
     Route: 065
  6. PLAVIX [Concomitant]
     Route: 065
  7. RESTORIL [Concomitant]
     Route: 065
  8. DILANTIN [Concomitant]
     Route: 065

REACTIONS (28)
  - ANXIETY [None]
  - ASTHENIA [None]
  - CAROTID ARTERY STENOSIS [None]
  - CEREBROVASCULAR ACCIDENT [None]
  - CONFUSIONAL STATE [None]
  - CONVULSION [None]
  - DEHYDRATION [None]
  - DEMENTIA [None]
  - DEMENTIA ALZHEIMER'S TYPE [None]
  - DIZZINESS [None]
  - FALL [None]
  - FATIGUE [None]
  - GAIT DISTURBANCE [None]
  - GRAND MAL CONVULSION [None]
  - HEADACHE [None]
  - HYPERKALAEMIA [None]
  - HYPOVOLAEMIA [None]
  - ISCHAEMIC STROKE [None]
  - LOSS OF CONSCIOUSNESS [None]
  - MALAISE [None]
  - OPEN WOUND [None]
  - POISONING [None]
  - RENAL FAILURE CHRONIC [None]
  - ROAD TRAFFIC ACCIDENT [None]
  - SKIN LACERATION [None]
  - SPINAL DISORDER [None]
  - URINARY TRACT INFECTION [None]
  - WRIST FRACTURE [None]
